FAERS Safety Report 13062484 (Version 1)
Quarter: 2016Q4

REPORT INFORMATION
  Report Type: Spontaneous
  Country: US (occurrence: US)
  Receive Date: 20161226
  Receipt Date: 20161226
  Transmission Date: 20170207
  Serious: Yes (Death)
  Sender: FDA-Public Use
  Company Number: US-SA-2016SA200488

PATIENT
  Age: 59 Year
  Sex: Female

DRUGS (1)
  1. AUBAGIO [Suspect]
     Active Substance: TERIFLUNOMIDE
     Indication: MULTIPLE SCLEROSIS RELAPSE
     Route: 048
     Dates: start: 20130824, end: 20161027

REACTIONS (3)
  - Dyspnoea [Fatal]
  - Acute myocardial infarction [Fatal]
  - Chest pain [Fatal]

NARRATIVE: CASE EVENT DATE: 20161027
